FAERS Safety Report 7271108-0 (Version None)
Quarter: 2011Q1

REPORT INFORMATION
  Report Type: 
  Country: None (occurrence: None)
  Receive Date: 20110202
  Receipt Date: 20110121
  Transmission Date: 20110831
  Serious: Yes (Hospitalization)
  Sender: FDA-Public Use
  Company Number: US-CELGENEUS-163-21880-11012403

PATIENT
  Sex: Male
  Weight: 70 kg

DRUGS (3)
  1. PREDNISONE [Concomitant]
     Route: 065
  2. REVLIMID [Suspect]
     Route: 048
     Dates: start: 20101223
  3. NYSTATIN [Concomitant]
     Route: 065

REACTIONS (3)
  - FUNGAL INFECTION [None]
  - VIITH NERVE PARALYSIS [None]
  - FATIGUE [None]
